FAERS Safety Report 13493163 (Version 1)
Quarter: 2017Q2

REPORT INFORMATION
  Report Type: Spontaneous
  Country: KR (occurrence: KR)
  Receive Date: 20170427
  Receipt Date: 20170427
  Transmission Date: 20170830
  Serious: Yes (Death, Life-Threatening, Hospitalization, Other)
  Sender: FDA-Public Use
  Company Number: KR-BRISTOL-MYERS SQUIBB COMPANY-BMS-2017-036350

PATIENT
  Age: 45 Year
  Sex: Female
  Weight: 48 kg

DRUGS (1)
  1. TRIAMCINOLONE ACETONIDE. [Suspect]
     Active Substance: TRIAMCINOLONE ACETONIDE
     Indication: BACK PAIN
     Dosage: 40 MG, UNK
     Route: 065

REACTIONS (10)
  - Craniectomy [Unknown]
  - Product use in unapproved indication [Unknown]
  - Pneumocephalus [Not Recovered/Not Resolved]
  - Systemic inflammatory response syndrome [Unknown]
  - Subdural hygroma [Unknown]
  - Psoas abscess [Unknown]
  - Abscess drainage [Unknown]
  - Neutrophilia [Unknown]
  - Meningitis leptospiral [Fatal]
  - Ventricular drainage [Unknown]
